FAERS Safety Report 24561709 (Version 1)
Quarter: 2024Q4

REPORT INFORMATION
  Report Type: Spontaneous
  Country: CA (occurrence: CA)
  Receive Date: 20241029
  Receipt Date: 20241029
  Transmission Date: 20250114
  Serious: Yes (Hospitalization)
  Sender: BAXTER
  Company Number: CA-BAXTER-2024BAX026510

PATIENT
  Sex: Male

DRUGS (2)
  1. SODIUM CHLORIDE [Suspect]
     Active Substance: SODIUM CHLORIDE
     Dosage: (0.9% NACL INJ 1000 ML) AT AN UNSPECIFIED DOSE 3 TIMES A WEEK OVER 10 HOURS
     Route: 065
  2. POTASSIUM CHLORIDE\SODIUM ACETATE\SODIUM CHLORIDE [Suspect]
     Active Substance: POTASSIUM CHLORIDE\SODIUM ACETATE\SODIUM CHLORIDE
     Dosage: (CONCENTRATE ACID NA100 K2) AT AN UNSPECIFIED DOSE 3 TIMES A WEEK OVER 10 HOURS
     Route: 065

REACTIONS (1)
  - Haematological infection [Unknown]
